FAERS Safety Report 6153558-9 (Version None)
Quarter: 2009Q2

REPORT INFORMATION
  Report Type: 
  Country: None (occurrence: None)
  Receive Date: 20090409
  Receipt Date: 20090409
  Transmission Date: 20091009
  Serious: Yes (Death)
  Sender: FDA-Public Use
  Company Number: None

PATIENT
  Age: 31 Year
  Sex: Female
  Weight: 81.6475 kg

DRUGS (1)
  1. XYREM [Suspect]
     Indication: NARCOLEPSY
     Dosage: 3 GRAMS DILUTED IN 60 ML WATER TWICE PER NIGHT PO APPROXIMATELY ONE YEAR
     Route: 048

REACTIONS (1)
  - ALCOHOL USE [None]
